FAERS Safety Report 10406956 (Version 2)
Quarter: 2015Q1

REPORT INFORMATION
  Report Type: Report from Study
  Country: DE (occurrence: None)
  Receive Date: 20140821
  Receipt Date: 20150130
  Transmission Date: 20150720
  Serious: Yes (Other)
  Sender: FDA-Public Use
  Company Number: 2014-20182

PATIENT
  Sex: Female

DRUGS (3)
  1. DEXA-SINE [DEXAMETHASONE] (DEXAMETHASONE) [Concomitant]
  2. VIGAMOX (MOXIFLOXACIN HYDROCHLORIDE) [Concomitant]
  3. EYLEA [Suspect]
     Active Substance: AFLIBERCEPT
     Indication: NEOVASCULAR AGE-RELATED MACULAR DEGENERATION
     Dosage: LEFT EYE
     Dates: start: 20140401

REACTIONS (1)
  - Ulcerative keratitis [None]

NARRATIVE: CASE EVENT DATE: 20140609
